FAERS Safety Report 4388584-3 (Version None)
Quarter: 2004Q2

REPORT INFORMATION
  Report Type: 
  Country: None (occurrence: None)
  Receive Date: 20040624
  Receipt Date: 20040616
  Transmission Date: 20050107
  Serious: Yes (Hospitalization)
  Sender: FDA-Public Use
  Company Number: 2004219605EE

PATIENT
  Age: 28 Year
  Sex: Male
  Weight: 72 kg

DRUGS (5)
  1. SULFASALAZINE [Suspect]
     Indication: ANKYLOSING SPONDYLITIS
     Dosage: SEE IMAGE
     Route: 048
     Dates: end: 20040515
  2. SULFASALAZINE [Suspect]
     Indication: ANKYLOSING SPONDYLITIS
     Dosage: SEE IMAGE
     Route: 048
     Dates: start: 20040430
  3. MOVALIS (MELOXICAM) [Concomitant]
  4. IBUMETIN [Concomitant]
  5. DICLOFENAC SODIUM [Concomitant]

REACTIONS (3)
  - C-REACTIVE PROTEIN INCREASED [None]
  - DERMATITIS BULLOUS [None]
  - LYMPHOCYTOSIS [None]
